FAERS Safety Report 7093584-9 (Version None)
Quarter: 2010Q4

REPORT INFORMATION
  Report Type: 
  Country: None (occurrence: None)
  Receive Date: 20101110
  Receipt Date: 20101101
  Transmission Date: 20110411
  Serious: Yes (Other)
  Sender: FDA-Public Use
  Company Number: US-ASTRAZENECA-2010SE52038

PATIENT
  Age: 60 Year
  Sex: Female
  Weight: 104.3 kg

DRUGS (6)
  1. SYMBICORT [Suspect]
     Indication: ASTHMA
     Dosage: 160 UG TWICE DAILY
     Route: 055
  2. DIOVAN HCT [Concomitant]
  3. OMEPRAZOLE [Concomitant]
     Indication: GASTROOESOPHAGEAL REFLUX DISEASE
  4. ARIMIDEX [Concomitant]
  5. ZALATAN [Concomitant]
  6. ALBUTEROL [Concomitant]

REACTIONS (5)
  - ASTHMA [None]
  - DRUG INEFFECTIVE [None]
  - LIP SWELLING [None]
  - PHARYNGEAL OEDEMA [None]
  - SENSATION OF FOREIGN BODY [None]
